FAERS Safety Report 17692376 (Version 3)
Quarter: 2020Q3

REPORT INFORMATION
  Report Type: Spontaneous
  Country: US (occurrence: US)
  Receive Date: 20200422
  Receipt Date: 20200708
  Transmission Date: 20201102
  Serious: Yes (Other)
  Sender: FDA-Public Use
  Company Number: US-PFIZER INC-2020159353

PATIENT
  Age: 60 Year
  Sex: Female

DRUGS (2)
  1. INLYTA [Suspect]
     Active Substance: AXITINIB
     Dosage: UNK
     Dates: start: 20191001
  2. INLYTA [Suspect]
     Active Substance: AXITINIB
     Dosage: 5 MG
     Dates: start: 20200317

REACTIONS (13)
  - Headache [Unknown]
  - Asthenia [Unknown]
  - Nausea [Unknown]
  - Dehydration [Unknown]
  - Dysphonia [Unknown]
  - Mucosal inflammation [Unknown]
  - Hypertension [Unknown]
  - Vomiting [Unknown]
  - Palmar-plantar erythrodysaesthesia syndrome [Unknown]
  - Hyperkeratosis [Unknown]
  - Hypothyroidism [Unknown]
  - Diarrhoea [Unknown]
  - Dry mouth [Unknown]

NARRATIVE: CASE EVENT DATE: 2020
